FAERS Safety Report 7593362-8 (Version None)
Quarter: 2011Q3

REPORT INFORMATION
  Report Type: 
  Country: None (occurrence: None)
  Receive Date: 20110706
  Receipt Date: 20110705
  Transmission Date: 20111222
  Serious: Yes (Other)
  Sender: FDA-Public Use
  Company Number: US-PFIZER INC-2011150393

PATIENT
  Sex: Female
  Weight: 62.585 kg

DRUGS (5)
  1. CYMBALTA [Concomitant]
     Indication: DEPRESSION
     Dosage: UNK
  2. SUBOXONE [Concomitant]
     Indication: BACK DISORDER
     Dosage: UNK
  3. CHANTIX [Suspect]
     Dosage: 0.5 MG, 2X/DAY
     Route: 048
     Dates: start: 20110101, end: 20110704
  4. CHANTIX [Suspect]
     Indication: SMOKING CESSATION THERAPY
     Dosage: 0.5 MG, 1X/DAY
     Route: 048
     Dates: start: 20110624, end: 20110101
  5. TRAZODONE [Concomitant]
     Indication: SLEEP DISORDER
     Dosage: 100 MG, UNK

REACTIONS (6)
  - HALLUCINATION, VISUAL [None]
  - FEAR [None]
  - SOMNOLENCE [None]
  - NAUSEA [None]
  - MALAISE [None]
  - ABNORMAL DREAMS [None]
